FAERS Safety Report 21306614 (Version 1)
Quarter: 2022Q3

REPORT INFORMATION
  Report Type: Spontaneous
  Country: US (occurrence: US)
  Receive Date: 20220908
  Receipt Date: 20220908
  Transmission Date: 20221027
  Serious: No
  Sender: FDA-Public Use
  Company Number: US-PERRIGO-22US005809

PATIENT
  Sex: Female

DRUGS (3)
  1. MINOXIDIL [Suspect]
     Active Substance: MINOXIDIL
     Indication: Alopecia
     Dosage: 1 ML, BID
     Route: 061
     Dates: start: 20211217, end: 202203
  2. MINOXIDIL [Suspect]
     Active Substance: MINOXIDIL
     Dosage: UNKNOWN, 1 TO 2 TIMES DAILY
     Route: 061
     Dates: start: 20211217, end: 20220417
  3. MINOXIDIL [Suspect]
     Active Substance: MINOXIDIL
     Dosage: 2 ML, QD
     Route: 061
     Dates: start: 202203, end: 20220417

REACTIONS (5)
  - Hypertrichosis [Recovered/Resolved]
  - Accidental exposure to product [Recovered/Resolved]
  - Inappropriate schedule of product administration [Recovered/Resolved]
  - Wrong technique in product usage process [Recovered/Resolved]
  - Incorrect dose administered [Recovered/Resolved]

NARRATIVE: CASE EVENT DATE: 20211217
